FAERS Safety Report 7662940-X (Version None)
Quarter: 2011Q3

REPORT INFORMATION
  Report Type: 
  Country: None (occurrence: None)
  Receive Date: 20110805
  Receipt Date: 20100917
  Transmission Date: 20111222
  Serious: No
  Sender: FDA-Public Use
  Company Number: US-ABBOTT-10P-163-0671865-00

PATIENT
  Sex: Male
  Weight: 108.96 kg

DRUGS (3)
  1. WARFARIN SODIUM [Concomitant]
     Indication: PRODUCT USED FOR UNKNOWN INDICATION
  2. DIOVAN [Concomitant]
     Indication: PRODUCT USED FOR UNKNOWN INDICATION
  3. NIASPAN [Suspect]
     Indication: HIGH DENSITY LIPOPROTEIN DECREASED
     Dosage: AT BEDTIME, ONGOING, INTERRUPTED
     Dates: start: 20100912, end: 20100915

REACTIONS (3)
  - FEELING HOT [None]
  - SKIN BURNING SENSATION [None]
  - FLUSHING [None]
